FAERS Safety Report 13280337 (Version 1)
Quarter: 2017Q1

REPORT INFORMATION
  Report Type: Spontaneous
  Country: FR (occurrence: FR)
  Receive Date: 20170301
  Receipt Date: 20170301
  Transmission Date: 20170428
  Serious: Yes (Hospitalization)
  Sender: FDA-Public Use
  Company Number: FR-ROCHE-1898917

PATIENT
  Age: 72 Year
  Sex: Male

DRUGS (7)
  1. LOVENOX [Concomitant]
     Active Substance: ENOXAPARIN SODIUM
     Route: 065
  2. DIFFU K [Concomitant]
     Active Substance: POTASSIUM CHLORIDE
     Route: 065
  3. AVASTIN [Suspect]
     Active Substance: BEVACIZUMAB
     Indication: LUNG ADENOCARCINOMA STAGE IV
     Dosage: FORM STRENGTH: 25 MG/ML
     Route: 042
     Dates: end: 201611
  4. ALIMTA [Concomitant]
     Active Substance: PEMETREXED DISODIUM
     Route: 065
  5. OPDIVO [Suspect]
     Active Substance: NIVOLUMAB
     Indication: LUNG ADENOCARCINOMA STAGE IV
     Dosage: ONE TREATMENT EVERY 14 DAYS?FORM STRENGTH:  10 MG/ML
     Route: 042
     Dates: start: 20161221, end: 20170118
  6. INEXIUM [Suspect]
     Active Substance: ESOMEPRAZOLE
     Indication: PRODUCT USED FOR UNKNOWN INDICATION
     Route: 065
  7. CISPLATIN. [Concomitant]
     Active Substance: CISPLATIN

REACTIONS (2)
  - Myasthenic syndrome [Recovering/Resolving]
  - Necrotising myositis [Recovering/Resolving]

NARRATIVE: CASE EVENT DATE: 20170121
